FAERS Safety Report 16560008 (Version 1)
Quarter: 2019Q3

REPORT INFORMATION
  Report Type: Spontaneous
  Country: RO (occurrence: RO)
  Receive Date: 20190711
  Receipt Date: 20190711
  Transmission Date: 20191004
  Serious: Yes (Life-Threatening)
  Sender: FDA-Public Use
  Company Number: RO-ASTRAZENECA-2019SE97624

PATIENT
  Age: 68 Year
  Sex: Male

DRUGS (2)
  1. BRILIQUE [Suspect]
     Active Substance: TICAGRELOR
     Indication: ANGINA UNSTABLE
     Route: 048
  2. ASA [Concomitant]
     Active Substance: ASPIRIN

REACTIONS (4)
  - Product use in unapproved indication [Unknown]
  - Intracranial aneurysm [Unknown]
  - Off label use [Unknown]
  - Haemorrhage intracranial [Unknown]
